FAERS Safety Report 8194878 (Version 2)
Quarter: 2014Q1

REPORT INFORMATION
  Report Type: Spontaneous
  Country: US (occurrence: US)
  Receive Date: 20111024
  Receipt Date: 20140204
  Transmission Date: 20141002
  Serious: Yes (Other)
  Sender: FDA-Public Use
  Company Number: US-JNJFOC-20111008810

PATIENT
  Sex: Male
  Weight: 92.99 kg

DRUGS (6)
  1. SANDOZ FENTANYL TRANSDERMAL SYSTEM [Suspect]
     Indication: PAIN
     Dosage: NDC#0781-7244
     Route: 062
     Dates: start: 2011
  2. PRISTIQ [Suspect]
     Indication: DEPRESSION
     Route: 048
     Dates: end: 2011
  3. LORAZEPAM [Concomitant]
     Indication: ANXIETY
     Route: 048
  4. LISINOPRIL HYDROCHLOROTHIAZIDE [Concomitant]
     Indication: HYPERTENSION
     Dosage: 20/25 MG DAILY
     Route: 048
  5. TRAZODONE [Concomitant]
     Indication: SLEEP DISORDER
     Dosage: 10MG/100 MG DAILY
     Route: 048
  6. METHADONE [Concomitant]
     Indication: PAIN
     Route: 048

REACTIONS (7)
  - Withdrawal syndrome [Recovered/Resolved]
  - Depression [Recovered/Resolved]
  - Wrong technique in drug usage process [Unknown]
  - Inappropriate schedule of drug administration [Recovered/Resolved]
  - Application site erosion [Recovered/Resolved]
  - Product adhesion issue [Unknown]
  - Product adhesion issue [Unknown]
